FAERS Safety Report 5265619-7 (Version None)
Quarter: 2007Q1

REPORT INFORMATION
  Report Type: 
  Country: None (occurrence: None)
  Receive Date: 20061213
  Receipt Date: 20021011
  Transmission Date: 20070707
  Serious: Yes (Hospitalization)
  Sender: FDA-Public Use
  Company Number: 2002UW13840

PATIENT
  Sex: Female

DRUGS (1)
  1. NOLVADEX [Suspect]
     Indication: NEOPLASM MALIGNANT

REACTIONS (2)
  - ENDOMETRIAL HYPERTROPHY [None]
  - VAGINAL HAEMORRHAGE [None]
